FAERS Safety Report 15739797 (Version 1)
Quarter: 2018Q4

REPORT INFORMATION
  Report Type: Spontaneous
  Country: US (occurrence: US)
  Receive Date: 20181218
  Receipt Date: 20181218
  Transmission Date: 20190205
  Serious: Yes (Hospitalization)
  Sender: FDA-Public Use
  Company Number: None

PATIENT
  Sex: Female

DRUGS (20)
  1. DEXAMETHASONE. [Concomitant]
     Active Substance: DEXAMETHASONE
  2. LEVAQUIN [Concomitant]
     Active Substance: LEVOFLOXACIN
  3. PRILOSEC [Concomitant]
     Active Substance: OMEPRAZOLE MAGNESIUM
  4. AFINITOR [Suspect]
     Active Substance: EVEROLIMUS
     Indication: TRANSPLANT
     Route: 048
     Dates: start: 20180913
  5. AMLODIPINE [Concomitant]
     Active Substance: AMLODIPINE BESYLATE
  6. VITAMIN D [Concomitant]
     Active Substance: CHOLECALCIFEROL
  7. AVELOX [Concomitant]
     Active Substance: MOXIFLOXACIN HYDROCHLORIDE
  8. CALCITROL [Concomitant]
     Active Substance: CALCITRIOL
  9. METOPROLOL TARTRATE. [Concomitant]
     Active Substance: METOPROLOL TARTRATE
  10. OMEPRAZOLE. [Concomitant]
     Active Substance: OMEPRAZOLE
  11. PROGRAF [Concomitant]
     Active Substance: TACROLIMUS\TACROLIMUS ANHYDROUS
  12. SYNTHROID [Concomitant]
     Active Substance: LEVOTHYROXINE SODIUM
  13. CIPRO [Concomitant]
     Active Substance: CIPROFLOXACIN HYDROCHLORIDE
  14. FLUDROCORT [Concomitant]
  15. ALPRAZOLAM. [Concomitant]
     Active Substance: ALPRAZOLAM
  16. CLONIDINE. [Concomitant]
     Active Substance: CLONIDINE
  17. NEXIUM [Concomitant]
     Active Substance: ESOMEPRAZOLE MAGNESIUM
  18. SODIUM BICARB [Concomitant]
     Active Substance: SODIUM BICARBONATE
  19. BIAXIN [Concomitant]
     Active Substance: CLARITHROMYCIN
  20. LOPERAMIDE [Concomitant]
     Active Substance: LOPERAMIDE

REACTIONS (1)
  - Hospitalisation [None]
